APPROVED DRUG PRODUCT: CARFILZOMIB
Active Ingredient: CARFILZOMIB
Strength: 60MG/VIAL
Dosage Form/Route: POWDER;INTRAVENOUS
Application: A209422 | Product #001 | TE Code: AP
Applicant: DR REDDYS LABORATORIES LTD
Approved: Sep 9, 2019 | RLD: No | RS: No | Type: RX